FAERS Safety Report 22030595 (Version 1)
Quarter: 2023Q1

REPORT INFORMATION
  Report Type: Spontaneous
  Country: JP (occurrence: JP)
  Receive Date: 20230223
  Receipt Date: 20230223
  Transmission Date: 20230418
  Serious: Yes (Hospitalization)
  Sender: FDA-Public Use
  Company Number: JP-Eisai-201810216_HAL-STS_P_1

PATIENT
  Age: 59 Year
  Sex: Female

DRUGS (2)
  1. ERIBULIN [Suspect]
     Active Substance: ERIBULIN
     Indication: Rhabdomyosarcoma
     Route: 041
     Dates: start: 20170421, end: 20170525
  2. ERIBULIN [Suspect]
     Active Substance: ERIBULIN
     Dosage: DOSE AND FREQUENCY UNKNOWN
     Route: 041
     Dates: start: 2017, end: 20170901

REACTIONS (1)
  - Neutropenia [Recovered/Resolved]

NARRATIVE: CASE EVENT DATE: 20170525
